FAERS Safety Report 6222601-0 (Version None)
Quarter: 2009Q2

REPORT INFORMATION
  Report Type: 
  Country: None (occurrence: None)
  Receive Date: 20090609
  Receipt Date: 20090609
  Transmission Date: 20091009
  Serious: Yes (Hospitalization)
  Sender: FDA-Public Use
  Company Number: None

PATIENT
  Sex: Female
  Weight: 63 kg

DRUGS (2)
  1. FLUOROURACIL [Suspect]
     Dosage: 4844 MG
     Dates: end: 20090510
  2. ELOXATIN [Suspect]
     Dosage: 147 MG
     Dates: end: 20090508

REACTIONS (6)
  - ABDOMINAL DISCOMFORT [None]
  - BLOOD CHLORIDE DECREASED [None]
  - BLOOD SODIUM DECREASED [None]
  - NAUSEA [None]
  - VOMITING [None]
  - WHITE BLOOD CELLS URINE POSITIVE [None]
